FAERS Safety Report 19707019 (Version 1)
Quarter: 2021Q3

REPORT INFORMATION
  Report Type: Spontaneous
  Country: DE (occurrence: DE)
  Receive Date: 20210817
  Receipt Date: 20210817
  Transmission Date: 20211014
  Serious: Yes (Life-Threatening, Hospitalization, Other)
  Sender: FDA-Public Use
  Company Number: DE-MYLANLABS-2021M1051748

PATIENT
  Age: 69 Year
  Sex: Male

DRUGS (11)
  1. METAMIZOL                          /06276701/ [Concomitant]
     Active Substance: METAMIZOLE
     Dosage: 500 MILLIGRAM, PRN (500 MG, BEDARF, TABLETTEN)
  2. EXFORGE HCT [Concomitant]
     Active Substance: AMLODIPINE BESYLATE\HYDROCHLOROTHIAZIDE\VALSARTAN
     Dosage: 1 DOSAGE FORM, QD (10|320|25 MG, 1?0?0?0, TABLETTEN)
  3. SITAGLIPTIN [Concomitant]
     Active Substance: SITAGLIPTIN
     Dosage: 50 MILLIGRAM, QD (50 MG, 1?0?0?0, TABLETTEN)
  4. URAPIDIL [Concomitant]
     Active Substance: URAPIDIL
     Dosage: 30 MILLIGRAM, Q8H (30 MG, 1?1?1?0, RETARD?TABLETTEN)
  5. PANTOPRAZOL                        /01263201/ [Concomitant]
     Active Substance: PANTOPRAZOLE
     Dosage: 40 MILLIGRAM, QD (40 MG, 0?0?1?0, TABLETTEN)
  6. TORASEMID [Concomitant]
     Active Substance: TORSEMIDE
     Dosage: 10 MILLIGRAM, QD (10 MILLIGRAM, QD (10 MG, 1?0?0?0, TABLETTEN))
  7. EPLERENONE. [Concomitant]
     Active Substance: EPLERENONE
     Dosage: 25 MILLIGRAM, QD (50 MG, 0.5?0?0?0, RETARD?KAPSELN)
  8. DOXAZOSIN [Concomitant]
     Active Substance: DOXAZOSIN MESYLATE
     Dosage: 4 MILLIGRAM, QD (4 MG, 1?0?0?0, TABLETTEN)
  9. BISOPROLOL [Suspect]
     Active Substance: BISOPROLOL
     Indication: PRODUCT USED FOR UNKNOWN INDICATION
     Dosage: 5 MG, 0?1?0?0, TABLETTEN
  10. SIMVASTATIN. [Concomitant]
     Active Substance: SIMVASTATIN
     Dosage: 40 MILLIGRAM, QD (40 MG, 0?0?1?0, TABLETTEN)
  11. ASPIRIN. [Concomitant]
     Active Substance: ASPIRIN
     Dosage: 100 MILLIGRAM, QD (100 MG, 1?0?0?0, TABLETTEN)

REACTIONS (3)
  - Condition aggravated [Unknown]
  - Impaired healing [Unknown]
  - Gangrene [Unknown]
